FAERS Safety Report 7012075-4 (Version None)
Quarter: 2010Q3

REPORT INFORMATION
  Report Type: 
  Country: None (occurrence: None)
  Receive Date: 20100924
  Receipt Date: 20100916
  Transmission Date: 20110219
  Serious: Yes (Other)
  Sender: FDA-Public Use
  Company Number: US-BAXTER-2010BH022076

PATIENT
  Age: 47 Year
  Sex: Male
  Weight: 65 kg

DRUGS (3)
  1. ADVATE [Suspect]
     Indication: HAEMOPHILIA
     Route: 042
  2. ADVATE [Suspect]
     Route: 042
     Dates: start: 20100701, end: 20100701
  3. DIGITALIS TAB [Concomitant]
     Indication: CARDIAC DISORDER

REACTIONS (2)
  - HYPOAESTHESIA [None]
  - MONOPLEGIA [None]
